FAERS Safety Report 4903838-7 (Version None)
Quarter: 2006Q1

REPORT INFORMATION
  Report Type: 
  Country: None (occurrence: None)
  Receive Date: 20060208
  Receipt Date: 20050713
  Transmission Date: 20060701
  Serious: No
  Sender: FDA-Public Use
  Company Number: US-GLAXOSMITHKLINE-A0566080A

PATIENT
  Age: 61 Year
  Sex: Female

DRUGS (4)
  1. PAXIL [Suspect]
     Indication: MIGRAINE
     Dosage: 12.5MG PER DAY
     Route: 048
     Dates: start: 20050709, end: 20050711
  2. DIAZEPAM [Suspect]
     Indication: DRUG USE FOR UNKNOWN INDICATION
     Route: 065
  3. LAMICTAL [Concomitant]
  4. BACLOFEN [Concomitant]

REACTIONS (4)
  - BALANCE DISORDER [None]
  - DIZZINESS [None]
  - NAUSEA [None]
  - TREMOR [None]
